FAERS Safety Report 15987643 (Version 1)
Quarter: 2019Q1

REPORT INFORMATION
  Report Type: Spontaneous
  Country: GB (occurrence: GB)
  Receive Date: 20190220
  Receipt Date: 20190220
  Transmission Date: 20190418
  Serious: Yes (Hospitalization, Other)
  Sender: FDA-Public Use
  Company Number: GB-PFIZER INC-2019070501

PATIENT
  Age: 47 Year
  Sex: Male

DRUGS (9)
  1. FLUOROURACIL. [Suspect]
     Active Substance: FLUOROURACIL
     Indication: CHEMOTHERAPY
     Dosage: UNK
  2. VITAMIN B COMPOUND STRONG [Concomitant]
     Dosage: 3 DF, 1X/DAY
     Route: 048
  3. PREGABALIN. [Concomitant]
     Active Substance: PREGABALIN
     Dosage: 200 MG, 1X/DAY
     Route: 048
  4. ORAMORPH [Concomitant]
     Active Substance: MORPHINE SULFATE
     Dosage: 10MG/5ML, AS NEEDED (FOUR TIMES A DAY)
     Route: 048
  5. COCODAMOL [Concomitant]
     Active Substance: ACETAMINOPHEN\CODEINE PHOSPHATE
     Dosage: 30MG/500MG, AS NEEDED (FOUR TIMES A DAY)
     Route: 048
  6. THIAMINE. [Concomitant]
     Active Substance: THIAMINE
     Dosage: 50 MG, 1X/DAY (MORNING)
     Route: 048
  7. BISOPROLOL [Concomitant]
     Active Substance: BISOPROLOL
     Dosage: 2.5 MG, 1X/DAY (MORNING)
     Route: 048
  8. MST CONTINUS [Concomitant]
     Active Substance: MORPHINE SULFATE
     Dosage: 120 MG, 1X/DAY
     Route: 048
  9. CARBOPLATIN. [Suspect]
     Active Substance: CARBOPLATIN
     Indication: CHEMOTHERAPY
     Dosage: 450MG/45ML VIALS

REACTIONS (2)
  - Pancytopenia [Recovered/Resolved]
  - Neutropenic sepsis [Unknown]
